FAERS Safety Report 5072016-6 (Version None)
Quarter: 2006Q3

REPORT INFORMATION
  Report Type: 
  Country: None (occurrence: None)
  Receive Date: 20060801
  Receipt Date: 20060718
  Transmission Date: 20061208
  Serious: Yes (Hospitalization)
  Sender: FDA-Public Use
  Company Number: APP200600196

PATIENT
  Sex: Female

DRUGS (1)
  1. CHORIONIC GONADORTOPIN INJ [Suspect]
     Indication: IN VITRO FERTILISATION

REACTIONS (3)
  - BLOOD CREATININE INCREASED [None]
  - OVARIAN HYPERSTIMULATION SYNDROME [None]
  - URETERIC STENOSIS [None]
